FAERS Safety Report 7581455-0 (Version None)
Quarter: 2011Q2

REPORT INFORMATION
  Report Type: 
  Country: None (occurrence: None)
  Receive Date: 20110629
  Receipt Date: 20110616
  Transmission Date: 20111010
  Serious: Yes (Other)
  Sender: FDA-Public Use
  Company Number: PHHY2011BR53823

PATIENT
  Sex: Male

DRUGS (2)
  1. EXFORGE HCT [Suspect]
     Dosage: UNK
  2. INDAPEN [Concomitant]
     Dosage: UNK

REACTIONS (12)
  - MUSCLE DISORDER [None]
  - BACK PAIN [None]
  - ORAL MUCOSAL ERYTHEMA [None]
  - PERIPHERAL COLDNESS [None]
  - DRY MOUTH [None]
  - HYPERTENSION [None]
  - EYE DISORDER [None]
  - TORTICOLLIS [None]
  - ARTHROPATHY [None]
  - ARTHRALGIA [None]
  - PRURITUS GENERALISED [None]
  - CHEST PAIN [None]
